FAERS Safety Report 11858477 (Version 1)
Quarter: 2015Q4

REPORT INFORMATION
  Report Type: Spontaneous
  Country: US (occurrence: US)
  Receive Date: 20151222
  Receipt Date: 20151222
  Transmission Date: 20160305
  Serious: Yes (Hospitalization)
  Sender: FDA-Public Use
  Company Number: PHEH2015US026307

PATIENT
  Age: 36 Year
  Sex: Female

DRUGS (2)
  1. GILENYA [Suspect]
     Active Substance: FINGOLIMOD HYDROCHLORIDE
     Indication: MULTIPLE SCLEROSIS
     Dosage: 0.5 MG, QD
     Route: 048
     Dates: start: 20141009
  2. LEXAPRO [Suspect]
     Active Substance: ESCITALOPRAM OXALATE
     Indication: PRODUCT USED FOR UNKNOWN INDICATION
     Route: 065

REACTIONS (7)
  - Mania [Recovering/Resolving]
  - Weight decreased [Unknown]
  - Pain in extremity [Unknown]
  - Lymphadenopathy [Unknown]
  - Multiple sclerosis [Recovered/Resolved with Sequelae]
  - Anxiety [Unknown]
  - Back pain [Unknown]

NARRATIVE: CASE EVENT DATE: 20150915
